FAERS Safety Report 7459902-4 (Version None)
Quarter: 2011Q2

REPORT INFORMATION
  Report Type: 
  Country: None (occurrence: None)
  Receive Date: 20110504
  Receipt Date: 20110504
  Transmission Date: 20111010
  Serious: Yes (Other)
  Sender: FDA-Public Use
  Company Number: None

PATIENT
  Age: 57 Year
  Sex: Male
  Weight: 59.8748 kg

DRUGS (1)
  1. ELOXATIN [Suspect]
     Indication: RECTOSIGMOID CANCER
     Dosage: 150 MG Q2W X 2 IV DRIP
     Route: 041
     Dates: start: 20100528, end: 20100629

REACTIONS (4)
  - FLUSHING [None]
  - SENSATION OF FOREIGN BODY [None]
  - PARAESTHESIA ORAL [None]
  - URTICARIA [None]
